FAERS Safety Report 4919766-7 (Version None)
Quarter: 2006Q1

REPORT INFORMATION
  Report Type: 
  Country: None (occurrence: None)
  Receive Date: 20060217
  Receipt Date: 20060206
  Transmission Date: 20060701
  Serious: Yes (Hospitalization, Other)
  Sender: FDA-Public Use
  Company Number: 2006018938

PATIENT
  Sex: Female
  Weight: 76.2043 kg

DRUGS (9)
  1. LIPITOR [Suspect]
     Indication: BLOOD CHOLESTEROL ABNORMAL
     Dosage: 10 MG (10 MG , 1 IN 1 D)
     Dates: start: 20050401
  2. GLIBENCLAMIDE TABLET (GLIBENCLAMIDE) [Suspect]
     Indication: DIABETES MELLITUS
  3. ALLOPURINOL [Concomitant]
  4. INDAPAMIDE [Concomitant]
  5. LISINOPRIL [Concomitant]
  6. ALL OTHER THERAPEUTIC PRODUCTS [Concomitant]
  7. CHOLESTYRAMINE RESIN (COLESTYRAMINE) [Concomitant]
  8. GLYBURIDE [Concomitant]
  9. ACTOS [Concomitant]

REACTIONS (6)
  - BLOOD CREATINE PHOSPHOKINASE INCREASED [None]
  - DIABETES MELLITUS [None]
  - HIP SURGERY [None]
  - IMMUNE SYSTEM DISORDER [None]
  - MUSCLE DISORDER [None]
  - RENAL IMPAIRMENT [None]
